FAERS Safety Report 10080904 (Version 1)
Quarter: 2014Q2

REPORT INFORMATION
  Report Type: Spontaneous
  Country: US (occurrence: US)
  Receive Date: 20140416
  Receipt Date: 20140416
  Transmission Date: 20141212
  Serious: No
  Sender: FDA-Public Use
  Company Number: US-009507513-1404USA006890

PATIENT
  Sex: Male

DRUGS (2)
  1. INVANZ [Suspect]
     Dosage: INVANZ IN THE USUAL CONCENTRATION
     Dates: start: 201404
  2. INVANZ [Suspect]
     Dosage: APPROXIMATELY 4MG/ML
     Dates: start: 201404

REACTIONS (3)
  - Underdose [Unknown]
  - Nausea [Unknown]
  - Wrong technique in drug usage process [Unknown]
